FAERS Safety Report 20932362 (Version 1)
Quarter: 2022Q2

REPORT INFORMATION
  Report Type: Other
  Country: US (occurrence: None)
  Receive Date: 20220608
  Receipt Date: 20220608
  Transmission Date: 20220721
  Serious: No
  Sender: FDA-Public Use
  Company Number: US-ROCHE-2917597

PATIENT
  Age: 59 Year
  Sex: Male

DRUGS (12)
  1. TOCILIZUMAB [Suspect]
     Active Substance: TOCILIZUMAB
     Indication: COVID-19
     Dosage: ONE DOSE OF TOCILIZUMAB
     Route: 065
  2. ASPIRIN [Concomitant]
     Active Substance: ASPIRIN
     Dosage: 81MG DAILY FOR PRIMARY PREVENTION.
  3. TICAGRELOR [Concomitant]
     Active Substance: TICAGRELOR
  4. ATORVASTATIN [Concomitant]
     Active Substance: ATORVASTATIN
  5. METOPROLOL TARTRATE [Concomitant]
     Active Substance: METOPROLOL TARTRATE
  6. HEPARIN [Concomitant]
     Active Substance: HEPARIN SODIUM
  7. DIGOXIN [Concomitant]
     Active Substance: DIGOXIN
  8. METOPROLOL TARTRATE [Concomitant]
     Active Substance: METOPROLOL TARTRATE
     Dosage: 37.5MG EVERY 6 HOURS
  9. AMIODARONE [Concomitant]
     Active Substance: AMIODARONE
     Dosage: LOADING DOSE FOLLOWED BY MAINTENANCE AT 200MG DAILY FOR?ATRIAL FLUTTER
  10. AZITHROMYCIN [Concomitant]
     Active Substance: AZITHROMYCIN
  11. HYDROXYCHLOROQUINE [Concomitant]
     Active Substance: HYDROXYCHLOROQUINE
  12. LOPINAVIR\RITONAVIR [Concomitant]
     Active Substance: LOPINAVIR\RITONAVIR

REACTIONS (2)
  - Off label use [Unknown]
  - No adverse event [Unknown]
